FAERS Safety Report 10865767 (Version 4)
Quarter: 2017Q1

REPORT INFORMATION
  Report Type: Spontaneous
  Country: US (occurrence: US)
  Receive Date: 20150224
  Receipt Date: 20170123
  Transmission Date: 20170428
  Serious: Yes (Other)
  Sender: FDA-Public Use
  Company Number: US-GLAXOSMITHKLINE-US2015GSK020076

PATIENT
  Sex: Female

DRUGS (1)
  1. BENLYSTA [Suspect]
     Active Substance: BELIMUMAB
     Indication: SYSTEMIC LUPUS ERYTHEMATOSUS
     Dosage: UNK, CYC

REACTIONS (6)
  - Skin disorder [Unknown]
  - Malaise [Unknown]
  - Pain [Unknown]
  - Nephrolithiasis [Unknown]
  - Hysterectomy [Unknown]
  - Drug dose omission [Unknown]
